FAERS Safety Report 8198196-1 (Version None)
Quarter: 2012Q1

REPORT INFORMATION
  Report Type: 
  Country: None (occurrence: None)
  Receive Date: 20120309
  Receipt Date: 20120228
  Transmission Date: 20120608
  Serious: Yes (Hospitalization)
  Sender: FDA-Public Use
  Company Number: FR-JNJFOC-20120303570

PATIENT
  Sex: Female

DRUGS (3)
  1. CITALOPRAM HYDROBROMIDE [Suspect]
     Indication: PRODUCT USED FOR UNKNOWN INDICATION
     Route: 048
     Dates: end: 20111219
  2. BACTRIM [Concomitant]
     Indication: BACTERIAL PYELONEPHRITIS
     Route: 065
     Dates: end: 20111214
  3. ACETAMINOPHEN AND TRAMADOL HCL [Suspect]
     Indication: PRODUCT USED FOR UNKNOWN INDICATION
     Dosage: THRICE A DAY
     Route: 048
     Dates: start: 20111214, end: 20111219

REACTIONS (1)
  - HYPONATRAEMIA [None]
